FAERS Safety Report 5519762-5 (Version None)
Quarter: 2007Q4

REPORT INFORMATION
  Report Type: 
  Country: None (occurrence: None)
  Receive Date: 20071116
  Receipt Date: 20070803
  Transmission Date: 20080405
  Serious: No
  Sender: FDA-Public Use
  Company Number: A0668743A

PATIENT
  Sex: Female

DRUGS (1)
  1. COREG CR [Suspect]
     Indication: HYPERTENSION
     Route: 048

REACTIONS (1)
  - BLOOD SODIUM DECREASED [None]
